FAERS Safety Report 23146931 (Version 8)
Quarter: 2025Q3

REPORT INFORMATION
  Report Type: Report from Study
  Country: US (occurrence: US)
  Receive Date: 20231106
  Receipt Date: 20250820
  Transmission Date: 20251020
  Serious: Yes (Other)
  Sender: TAKEDA
  Company Number: US-TAKEDA-US202013058

PATIENT
  Sex: Male
  Weight: 107 kg

DRUGS (11)
  1. HUMAN IMMUNOGLOBULIN G [Suspect]
     Active Substance: HUMAN IMMUNOGLOBULIN G
     Indication: Immunodeficiency common variable
     Dosage: 50 GRAM, Q3WEEKS
  2. HUMAN IMMUNOGLOBULIN G [Suspect]
     Active Substance: HUMAN IMMUNOGLOBULIN G
     Indication: Primary immunodeficiency syndrome
     Dosage: 35 GRAM, Q2WEEKS
  3. HUMAN IMMUNOGLOBULIN G [Suspect]
     Active Substance: HUMAN IMMUNOGLOBULIN G
     Dosage: 35 GRAM, Q2WEEKS
  4. HUMAN IMMUNOGLOBULIN G [Suspect]
     Active Substance: HUMAN IMMUNOGLOBULIN G
     Dosage: 35 GRAM, Q2WEEKS
  5. HUMAN IMMUNOGLOBULIN G [Suspect]
     Active Substance: HUMAN IMMUNOGLOBULIN G
     Dosage: 35 GRAM, Q2WEEKS
  6. HUMAN IMMUNOGLOBULIN G [Suspect]
     Active Substance: HUMAN IMMUNOGLOBULIN G
     Dosage: 35 GRAM, Q2WEEKS
  7. HUMAN IMMUNOGLOBULIN G [Suspect]
     Active Substance: HUMAN IMMUNOGLOBULIN G
  8. HUMAN IMMUNOGLOBULIN G [Suspect]
     Active Substance: HUMAN IMMUNOGLOBULIN G
  9. HUMAN IMMUNOGLOBULIN G [Suspect]
     Active Substance: HUMAN IMMUNOGLOBULIN G
  10. HUMAN IMMUNOGLOBULIN G [Suspect]
     Active Substance: HUMAN IMMUNOGLOBULIN G
  11. DILTIAZEM [Concomitant]
     Active Substance: DILTIAZEM
     Indication: Hypertension

REACTIONS (29)
  - Lower respiratory tract infection [Unknown]
  - Neuropathy peripheral [Unknown]
  - Skin cancer [Unknown]
  - Colitis [Recovered/Resolved]
  - Intervertebral disc protrusion [Unknown]
  - Gastroenteritis viral [Recovered/Resolved]
  - Productive cough [Unknown]
  - Fear [Unknown]
  - Weight decreased [Unknown]
  - Oral discomfort [Unknown]
  - Herpes zoster [Unknown]
  - Hypoaesthesia [Unknown]
  - Blood pressure fluctuation [Unknown]
  - Palpitations [Unknown]
  - Wheezing [Unknown]
  - Oropharyngeal pain [Unknown]
  - Anxiety [Unknown]
  - Dyspnoea [Unknown]
  - Cough [Recovered/Resolved]
  - Fatigue [Unknown]
  - Nasopharyngitis [Unknown]
  - Illness [Recovered/Resolved]
  - Epstein-Barr virus infection [Unknown]
  - Splenomegaly [Recovering/Resolving]
  - Tooth disorder [Unknown]
  - Carpal tunnel syndrome [Unknown]
  - Influenza [Unknown]
  - Pyrexia [Unknown]
  - Melanocytic naevus [Unknown]
